FAERS Safety Report 16828923 (Version 2)
Quarter: 2020Q1

REPORT INFORMATION
  Report Type: Spontaneous
  Country: US (occurrence: US)
  Receive Date: 20190919
  Receipt Date: 20200219
  Transmission Date: 20200409
  Serious: Yes (Disabling, Other)
  Sender: FDA-Public Use
  Company Number: US-PFIZER INC-2019400817

PATIENT
  Age: 61 Year
  Sex: Female

DRUGS (2)
  1. LYRICA [Suspect]
     Active Substance: PREGABALIN
     Indication: NEURALGIA
     Dosage: 375 MG, DAILY (75MG, ONE CAPSULE THREE TIMES A DAY AND TWO CAPSULES AT NIGHT)
  2. LYRICA [Suspect]
     Active Substance: PREGABALIN
     Dosage: 75 MG, 4X/DAY

REACTIONS (2)
  - Spinal cord injury cervical [Unknown]
  - Accident [Unknown]

NARRATIVE: CASE EVENT DATE: 201610
